FAERS Safety Report 23759793 (Version 1)
Quarter: 2024Q2

REPORT INFORMATION
  Report Type: Report from Study
  Country: FR (occurrence: FR)
  Receive Date: 20240419
  Receipt Date: 20240419
  Transmission Date: 20240717
  Serious: Yes (Hospitalization)
  Sender: FDA-Public Use
  Company Number: FR-ABBVIE-17K-056-2138656-00

PATIENT
  Age: 51 Year
  Sex: Male

DRUGS (3)
  1. HUMIRA [Suspect]
     Active Substance: ADALIMUMAB
     Indication: Colitis ulcerative
     Route: 058
     Dates: start: 20170207, end: 20170726
  2. Solupred [Concomitant]
     Indication: Colitis ulcerative
     Dosage: 60 MILLIGRAM
     Route: 048
     Dates: start: 20161220, end: 20170220
  3. PENTASA [Concomitant]
     Active Substance: MESALAMINE
     Indication: Product used for unknown indication
     Route: 048
     Dates: start: 20170301

REACTIONS (6)
  - Traumatic fracture [Recovered/Resolved]
  - Drug ineffective [Unknown]
  - Arthritis [Unknown]
  - Colitis ulcerative [Not Recovered/Not Resolved]
  - Colitis [Recovered/Resolved]
  - Colitis [Recovered/Resolved]

NARRATIVE: CASE EVENT DATE: 20170101
